FAERS Safety Report 12355334 (Version 1)
Quarter: 2016Q2

REPORT INFORMATION
  Report Type: Report from Study
  Country: US (occurrence: US)
  Receive Date: 20160511
  Receipt Date: 20160511
  Transmission Date: 20160815
  Serious: Yes (Hospitalization)
  Sender: FDA-Public Use
  Company Number: US-GILEAD-2016-0205397

PATIENT
  Age: 8 Year
  Sex: Male
  Weight: 22 kg

DRUGS (16)
  1. DIGOXIN. [Concomitant]
     Active Substance: DIGOXIN
  2. FLOVENT [Concomitant]
     Active Substance: FLUTICASONE PROPIONATE
  3. SPIRONOLACTONE. [Concomitant]
     Active Substance: SPIRONOLACTONE
  4. CEFDINIR. [Concomitant]
     Active Substance: CEFDINIR
  5. HYDROCHLOROTHIAZIDE. [Concomitant]
     Active Substance: HYDROCHLOROTHIAZIDE
  6. AMBRISENTAN [Suspect]
     Active Substance: AMBRISENTAN
     Indication: PULMONARY HYPERTENSION
     Dosage: 5 MG, QD
     Route: 065
     Dates: start: 20150811
  7. CLINDAMYCIN HCL [Concomitant]
     Active Substance: CLINDAMYCIN HYDROCHLORIDE
  8. ALBUTEROL                          /00139501/ [Concomitant]
     Active Substance: ALBUTEROL
  9. ELDERBERRY                         /01651601/ [Concomitant]
  10. FISH OIL [Concomitant]
     Active Substance: FISH OIL
  11. SILDENAFIL. [Concomitant]
     Active Substance: SILDENAFIL
  12. POTASSIUM ACETATE. [Concomitant]
     Active Substance: POTASSIUM ACETATE
  13. PREVACID [Concomitant]
     Active Substance: LANSOPRAZOLE
  14. REMODULIN [Concomitant]
     Active Substance: TREPROSTINIL
  15. ASPIRIN                            /00002701/ [Concomitant]
     Active Substance: ASPIRIN
  16. DHA [Concomitant]
     Active Substance: DIETARY SUPPLEMENT

REACTIONS (2)
  - Respiratory tract infection viral [Unknown]
  - Off label use [Not Recovered/Not Resolved]

NARRATIVE: CASE EVENT DATE: 20150811
